FAERS Safety Report 12981809 (Version 1)
Quarter: 2016Q4

REPORT INFORMATION
  Report Type: Spontaneous
  Country: KR (occurrence: KR)
  Receive Date: 20161129
  Receipt Date: 20161129
  Transmission Date: 20170207
  Serious: Yes (Hospitalization)
  Sender: FDA-Public Use
  Company Number: KR-OTSUKA-2016_027813

PATIENT
  Age: 72 Year
  Sex: Male

DRUGS (17)
  1. FEXOFENADINE [Concomitant]
     Active Substance: FEXOFENADINE\FEXOFENADINE HYDROCHLORIDE
     Indication: PNEUMONIA
     Dosage: 3 G, UNK
     Route: 065
     Dates: start: 20150930
  2. LOPERAMIDE OXIDE [Concomitant]
     Active Substance: LOPERAMIDE OXIDE
     Indication: DIABETES MELLITUS
     Dosage: 850 MG, UNK
     Route: 065
  3. TOFISOPAM [Concomitant]
     Active Substance: TOFISOPAM
     Indication: INAPPROPRIATE ANTIDIURETIC HORMONE SECRETION
     Dosage: 15 MG, UNK
     Route: 065
     Dates: start: 20151017
  4. SITAGLIPTIN [Concomitant]
     Active Substance: SITAGLIPTIN
     Indication: JOINT DISLOCATION
     Dosage: 3 TABLET
     Route: 065
  5. TEICOPLANIN [Concomitant]
     Active Substance: TEICOPLANIN
     Indication: ASTHENIA
     Dosage: 50 MG, UNK
     Route: 065
  6. MEROPENEM. [Concomitant]
     Active Substance: MEROPENEM
     Indication: ASTHENIA
     Dosage: 12.5 MG, UNK
     Route: 065
  7. MOXIFLOXACIN. [Concomitant]
     Active Substance: MOXIFLOXACIN
     Indication: PNEUMONIA
     Dosage: 400 MG, UNK
     Route: 065
     Dates: start: 20151105
  8. SAMSCA [Suspect]
     Active Substance: TOLVAPTAN
     Indication: PROPHYLAXIS
     Dosage: 40 MG, QD
     Route: 065
     Dates: start: 20151103
  9. AFATINIB [Concomitant]
     Active Substance: AFATINIB
     Indication: PRODUCT USED FOR UNKNOWN INDICATION
     Dosage: 220 MG, UNK
     Route: 065
     Dates: start: 20151111
  10. DABIGATRAN ETEXILATE [Concomitant]
     Active Substance: DABIGATRAN ETEXILATE
     Indication: DIARRHOEA
     Dosage: 1 MG, UNK
     Route: 065
     Dates: start: 20151108
  11. DIOSMECTITE [Concomitant]
     Active Substance: MONTMORILLONITE
     Indication: INSOMNIA
     Dosage: 1 MG, UNK
     Route: 065
  12. QUETIAPINE. [Concomitant]
     Active Substance: QUETIAPINE
     Indication: ASTHENIA
     Dosage: 100 MG, UNK
     Route: 065
  13. SAMSCA [Suspect]
     Active Substance: TOLVAPTAN
     Indication: LUNG CARCINOMA CELL TYPE UNSPECIFIED STAGE 0
     Dosage: 300 MG, UNK
     Route: 065
     Dates: start: 20151027
  14. SODIUM CHLORIDE. [Concomitant]
     Active Substance: SODIUM CHLORIDE
     Indication: ESSENTIAL HYPERTENSION
     Dosage: 6.25 MG, UNK
     Route: 065
     Dates: start: 20151114
  15. CARVEDILOL. [Concomitant]
     Active Substance: CARVEDILOL
     Indication: NASAL DISORDER
     Dosage: 120 MG, UNK
     Route: 065
     Dates: start: 20151107
  16. LORAZEPAM. [Concomitant]
     Active Substance: LORAZEPAM
     Indication: PNEUMONIA
     Dosage: 400 MG, UNK
     Route: 065
     Dates: start: 20151027
  17. METFORMIN [Concomitant]
     Active Substance: METFORMIN HYDROCHLORIDE
     Indication: DIABETES MELLITUS
     Dosage: 100 MG, UNK
     Route: 065

REACTIONS (1)
  - Pleural effusion [Not Recovered/Not Resolved]

NARRATIVE: CASE EVENT DATE: 20151118
